FAERS Safety Report 5031706-1 (Version None)
Quarter: 2006Q2

REPORT INFORMATION
  Report Type: 
  Country: None (occurrence: None)
  Receive Date: 20060616
  Receipt Date: 20060531
  Transmission Date: 20061013
  Serious: Yes (Death, Other)
  Sender: FDA-Public Use
  Company Number: US200606000400

PATIENT
  Age: 75 Year
  Sex: Female

DRUGS (2)
  1. ZYPREXA [Suspect]
     Dosage: 25 MG, DAILY (1/D), ORAL
     Route: 048
  2. REGLAN /USA/ (METOCLOPRAMIDE HYDROCHLORIDE) [Concomitant]

REACTIONS (5)
  - ANOREXIA [None]
  - DYSPNOEA [None]
  - PNEUMONIA [None]
  - PRESCRIBED OVERDOSE [None]
  - RESPIRATORY FAILURE [None]
